FAERS Safety Report 13045501 (Version 1)
Quarter: 2016Q4

REPORT INFORMATION
  Report Type: Spontaneous
  Country: FR (occurrence: FR)
  Receive Date: 20161220
  Receipt Date: 20161220
  Transmission Date: 20170207
  Serious: Yes (Other)
  Sender: FDA-Public Use
  Company Number: PHHY2016FR171691

PATIENT
  Age: 20 Month
  Sex: Female

DRUGS (1)
  1. GLIVEC [Suspect]
     Active Substance: IMATINIB MESYLATE
     Indication: FOETAL EXPOSURE DURING PREGNANCY
     Dosage: FETAL DRUG EXPOSURE VIA FATHER, 600 MG/DAYFOR 12 MONTHS
     Route: 064

REACTIONS (3)
  - Pelvi-ureteric obstruction [Unknown]
  - Hydronephrosis [Unknown]
  - Exposure via father [Unknown]
